FAERS Safety Report 13744009 (Version 3)
Quarter: 2019Q1

REPORT INFORMATION
  Report Type: Spontaneous
  Country: CA (occurrence: CA)
  Receive Date: 20170712
  Receipt Date: 20190320
  Transmission Date: 20190417
  Serious: Yes (Hospitalization, Other)
  Sender: FDA-Public Use
  Company Number: CA-BAXTER-2017BAX027195

PATIENT
  Age: 30 Year
  Sex: Female

DRUGS (11)
  1. CALCITONIN [Suspect]
     Active Substance: CALCITONIN
     Dosage: DOSAGE FORM NOT SPECIFIED
     Route: 065
  2. CALCIUM CARBONATE. [Suspect]
     Active Substance: CALCIUM CARBONATE
     Indication: HYPERCALCAEMIA
     Dosage: DOSAGE FORM NOT SPECIFIED
     Route: 065
  3. ERGOCALCIFEROL. [Suspect]
     Active Substance: ERGOCALCIFEROL
     Indication: PRODUCT USED FOR UNKNOWN INDICATION
     Route: 065
  4. 0.9% SODIUM CHLORIDE INJECTION [Suspect]
     Active Substance: SODIUM CHLORIDE
     Indication: HYPERCALCAEMIA
     Dosage: DOSAGE FORM NOT SPECIFIED
     Route: 042
  5. CALCITONIN [Suspect]
     Active Substance: CALCITONIN
     Indication: HYPERCALCAEMIA
     Dosage: DOSAGE FORM NOT SPECIFIED
     Route: 065
  6. ERGOCALCIFEROL. [Suspect]
     Active Substance: ERGOCALCIFEROL
     Indication: HYPERCALCAEMIA
     Dosage: DOSAGE FORM NOT SPECIFIED
     Route: 065
  7. CALCITONIN [Suspect]
     Active Substance: CALCITONIN
     Dosage: DOSAGE FORM NOT SPECIFIED
     Route: 065
  8. 0.9% SODIUM CHLORIDE INJECTION [Suspect]
     Active Substance: SODIUM CHLORIDE
     Indication: PRODUCT USED FOR UNKNOWN INDICATION
     Dosage: DOSAGE FORM NOT SPECIFIED
     Route: 042
  9. CALCIUM CARBONATE. [Suspect]
     Active Substance: CALCIUM CARBONATE
     Indication: PRODUCT USED FOR UNKNOWN INDICATION
     Route: 065
  10. CHOLECALCIFEROL [Suspect]
     Active Substance: CHOLECALCIFEROL
     Indication: PRODUCT USED FOR UNKNOWN INDICATION
     Dosage: DOSAGE FORM NOT SPECIFIED
     Route: 065
  11. APO-CALCITONIN [Suspect]
     Active Substance: CALCITONIN
     Indication: HYPERCALCAEMIA
     Dosage: APO-CALCITONIN INJECTABLE, LIQUID INTRAMUSCULAR
     Route: 065

REACTIONS (10)
  - Nephrocalcinosis [Recovered/Resolved]
  - Hypercalcaemia [Recovered/Resolved]
  - Blood calcium increased [Recovered/Resolved]
  - Maternal exposure during pregnancy [Recovered/Resolved]
  - Renal failure [Recovered/Resolved]
  - Blood creatinine increased [Recovered/Resolved]
  - Calculus urinary [Recovered/Resolved]
  - Drug ineffective [Recovered/Resolved]
  - Diabetes insipidus [Recovered/Resolved]
  - Exposure during pregnancy [Recovered/Resolved]
